FAERS Safety Report 16985215 (Version 2)
Quarter: 2019Q4

REPORT INFORMATION
  Report Type: Spontaneous
  Country: JP (occurrence: JP)
  Receive Date: 20191101
  Receipt Date: 20191126
  Transmission Date: 20200122
  Serious: Yes (Hospitalization)
  Sender: FDA-Public Use
  Company Number: JP-ASTRAZENECA-2019SE84849

PATIENT
  Age: 68 Year
  Sex: Female
  Weight: 38 kg

DRUGS (13)
  1. TAGRISSO [Suspect]
     Active Substance: OSIMERTINIB
     Indication: NON-SMALL CELL LUNG CANCER
     Route: 048
     Dates: start: 20190515, end: 20190603
  2. AMOXICILLIN HYDRATE [Suspect]
     Active Substance: AMOXICILLIN
     Indication: TOOTH EXTRACTION
     Route: 048
     Dates: start: 20190529, end: 20190602
  3. VICCILLIN [Suspect]
     Active Substance: AMPICILLIN
     Indication: TOOTH EXTRACTION
     Route: 041
     Dates: start: 20190529, end: 20190529
  4. RINDERON (BETAMETHASONE) [Concomitant]
     Active Substance: BETAMETHASONE
     Indication: BRAIN NEOPLASM
     Route: 048
     Dates: start: 20190517, end: 20190523
  5. E KEPPRA [Concomitant]
     Active Substance: LEVETIRACETAM
     Indication: BRAIN NEOPLASM
     Route: 048
     Dates: start: 20190415
  6. TAGRISSO [Suspect]
     Active Substance: OSIMERTINIB
     Indication: NON-SMALL CELL LUNG CANCER
     Route: 048
     Dates: start: 20190927
  7. RINDERON (BETAMETHASONE) [Concomitant]
     Active Substance: BETAMETHASONE
     Indication: BRAIN NEOPLASM
     Route: 048
     Dates: start: 20190427, end: 20190516
  8. TAGRISSO [Suspect]
     Active Substance: OSIMERTINIB
     Indication: NON-SMALL CELL LUNG CANCER
     Route: 048
     Dates: start: 20190614, end: 20190926
  9. RINDERON (BETAMETHASONE) [Concomitant]
     Active Substance: BETAMETHASONE
     Indication: BRAIN NEOPLASM
     Route: 048
     Dates: start: 20190524, end: 20190530
  10. PREDNISOLONE. [Concomitant]
     Active Substance: PREDNISOLONE
     Indication: BRAIN NEOPLASM
     Route: 048
     Dates: start: 20190614, end: 20190620
  11. RINDERON (BETAMETHASONE) [Concomitant]
     Active Substance: BETAMETHASONE
     Indication: BRAIN NEOPLASM
     Route: 048
     Dates: start: 20190531, end: 20190613
  12. LANSOPRAZOLE. [Concomitant]
     Active Substance: LANSOPRAZOLE
     Indication: ADVERSE DRUG REACTION
     Route: 048
     Dates: start: 20190427
  13. DAIPHEN [Concomitant]
     Active Substance: SULFAMETHOXAZOLE\TRIMETHOPRIM
     Indication: ADVERSE DRUG REACTION
     Route: 048
     Dates: start: 20190427, end: 20190523

REACTIONS (2)
  - Hepatic function abnormal [Recovering/Resolving]
  - Hepatic cyst [Unknown]

NARRATIVE: CASE EVENT DATE: 20190603
